FAERS Safety Report 20166470 (Version 1)
Quarter: 2021Q4

REPORT INFORMATION
  Report Type: Spontaneous
  Country: US (occurrence: US)
  Receive Date: 20211209
  Receipt Date: 20211209
  Transmission Date: 20220303
  Serious: Yes (Other)
  Sender: FDA-Public Use
  Company Number: US-JNJFOC-20211209743

PATIENT
  Age: 29 Year
  Sex: Male
  Weight: 136.20 kg

DRUGS (6)
  1. SPRAVATO [Suspect]
     Active Substance: ESKETAMINE
     Indication: Depression
     Dosage: STOPPED FROM OCT-2020 TO NOV-2020
     Dates: start: 202007, end: 202009
  2. SPRAVATO [Suspect]
     Active Substance: ESKETAMINE
     Dates: start: 202012
  3. SPRAVATO [Suspect]
     Active Substance: ESKETAMINE
  4. SPRAVATO [Suspect]
     Active Substance: ESKETAMINE
     Dates: start: 202104, end: 202106
  5. SPRAVATO [Suspect]
     Active Substance: ESKETAMINE
     Dates: start: 202107, end: 2021
  6. SPRAVATO [Suspect]
     Active Substance: ESKETAMINE
     Dates: start: 202110

REACTIONS (4)
  - Suicidal ideation [Unknown]
  - Product dose omission issue [Unknown]
  - Depression [Unknown]
  - Depressed mood [Unknown]

NARRATIVE: CASE EVENT DATE: 20201001
